FAERS Safety Report 5782509-1 (Version None)
Quarter: 2008Q2

REPORT INFORMATION
  Report Type: 
  Country: None (occurrence: None)
  Receive Date: 20080618
  Receipt Date: 20080605
  Transmission Date: 20081010
  Serious: Yes (Death)
  Sender: FDA-Public Use
  Company Number: S08-UKI-02069-01

PATIENT
  Sex: Male

DRUGS (5)
  1. CITALOPRAM HYDROBROMIDE [Suspect]
     Dosage: 60 MG QD PO
     Route: 048
  2. VALPROATE SODIUM [Concomitant]
  3. KEPPRA [Concomitant]
  4. CARBAMAZEPINE [Concomitant]
  5. AMOXICILLIN [Concomitant]

REACTIONS (1)
  - DEATH [None]
